FAERS Safety Report 4317955-6 (Version None)
Quarter: 2004Q1

REPORT INFORMATION
  Report Type: 
  Country: None (occurrence: None)
  Receive Date: 20040316
  Receipt Date: 20040217
  Transmission Date: 20041129
  Serious: Yes (Other)
  Sender: FDA-Public Use
  Company Number: NL-GLAXOSMITHKLINE-B0323746A

PATIENT
  Age: 68 Year
  Sex: Male
  Weight: 107 kg

DRUGS (8)
  1. AVANDIA [Suspect]
     Indication: DIABETES MELLITUS
     Route: 048
     Dates: start: 20021211
  2. METFORMIN HCL [Concomitant]
     Indication: DIABETES MELLITUS
     Dosage: 2G PER DAY
     Route: 065
  3. ASPIRIN [Concomitant]
     Dosage: 80MG PER DAY
     Route: 065
     Dates: start: 20031125
  4. ATENOLOL [Concomitant]
     Dosage: 25MG PER DAY
     Route: 065
     Dates: start: 20031125
  5. SILDENAFIL [Concomitant]
     Dosage: 50MG PER DAY
     Route: 065
     Dates: start: 20031125
  6. LIPITOR [Concomitant]
     Dosage: 20MG PER DAY
     Route: 065
     Dates: start: 20031125
  7. ISOSORBIDE 5-MONONITRATE [Concomitant]
     Dosage: 50MG PER DAY
  8. FRUSEMIDE [Concomitant]
     Dosage: 40MG PER DAY
     Route: 048

REACTIONS (7)
  - ABNORMAL CHEST SOUND [None]
  - ANGINA PECTORIS [None]
  - CARDIAC ASTHMA [None]
  - CARDIAC FAILURE [None]
  - CHEST PAIN [None]
  - DYSPNOEA [None]
  - OEDEMA PERIPHERAL [None]
